FAERS Safety Report 9009203 (Version 1)
Quarter: 2013Q1

REPORT INFORMATION
  Report Type: Spontaneous
  Country: US (occurrence: US)
  Receive Date: 20130111
  Receipt Date: 20130111
  Transmission Date: 20140127
  Serious: Yes (Hospitalization, Other)
  Sender: FDA-Public Use
  Company Number: US-009507513-1301USA001614

PATIENT
  Age: 81 Year
  Sex: Male

DRUGS (6)
  1. SINGULAIR [Suspect]
     Indication: BRONCHITIS
     Dosage: 10 MG, QD
  2. CEFDITOREN PIVOXIL [Suspect]
     Dosage: 300 MG, QD
     Route: 048
  3. QVAR [Concomitant]
  4. SEREVENT [Concomitant]
  5. HOKUNALIN [Concomitant]
  6. PREDNISOLONE [Concomitant]

REACTIONS (5)
  - Alanine aminotransferase increased [Unknown]
  - Liver disorder [Unknown]
  - Blood lactate dehydrogenase increased [Unknown]
  - Blood alkaline phosphatase increased [Unknown]
  - Aspartate aminotransferase increased [Unknown]
